FAERS Safety Report 21577496 (Version 2)
Quarter: 2022Q4

REPORT INFORMATION
  Report Type: Report from Study
  Country: UZ (occurrence: UZ)
  Receive Date: 20221110
  Receipt Date: 20221129
  Transmission Date: 20230113
  Serious: Yes (Hospitalization, Other)
  Sender: FDA-Public Use
  Company Number: UZ-MYLANLABS-2022M1122996

PATIENT
  Sex: Female
  Weight: 65 kg

DRUGS (4)
  1. PRETOMANID [Suspect]
     Active Substance: PRETOMANID
     Indication: Tuberculosis
     Dosage: 200 MILLIGRAM, QD (200 MG ONCE A DAY)
     Route: 048
     Dates: start: 20220818, end: 20221025
  2. BEDAQUILINE [Suspect]
     Active Substance: BEDAQUILINE
     Indication: Tuberculosis
     Dosage: 200 MILLIGRAM  3/7
     Route: 048
     Dates: start: 20220818, end: 20221025
  3. LINEZOLID [Suspect]
     Active Substance: LINEZOLID
     Indication: Tuberculosis
     Dosage: 600 MILLIGRAM, QD (600 MG ONCE A DAY)
     Route: 048
     Dates: start: 20220818, end: 20221025
  4. MOXIFLOXACIN [Suspect]
     Active Substance: MOXIFLOXACIN
     Indication: Tuberculosis
     Dosage: 400 MILLIGRAM, QD (400 MG ONCE A DAY)
     Route: 048
     Dates: start: 20220818, end: 20221025

REACTIONS (9)
  - Alanine aminotransferase increased [Recovering/Resolving]
  - Aspartate aminotransferase increased [Not Recovered/Not Resolved]
  - Drug-induced liver injury [Unknown]
  - Cholecystitis [Unknown]
  - Splenomegaly [Unknown]
  - Nausea [Unknown]
  - Rash [Recovered/Resolved]
  - Lipase increased [Recovered/Resolved]
  - Blood bilirubin increased [Recovered/Resolved]

NARRATIVE: CASE EVENT DATE: 20220901
